FAERS Safety Report 23021090 (Version 2)
Quarter: 2024Q2

REPORT INFORMATION
  Report Type: Report from Study
  Country: US (occurrence: US)
  Receive Date: 20231003
  Receipt Date: 20240414
  Transmission Date: 20240716
  Serious: Yes (Hospitalization, Other)
  Sender: FDA-Public Use
  Company Number: US-ABBVIE-5430797

PATIENT
  Sex: Female

DRUGS (2)
  1. HUMIRA [Suspect]
     Active Substance: ADALIMUMAB
     Indication: Rheumatoid arthritis
     Dosage: CITRATE FREE?FORM STRENGTH 40 MILLIGRAM
     Route: 058
     Dates: start: 20201106, end: 20230728
  2. HUMIRA [Suspect]
     Active Substance: ADALIMUMAB
     Dosage: CITRATE FREE?FORM STRENGTH 40 MILLIGRAM
     Route: 058

REACTIONS (1)
  - Hernia [Recovering/Resolving]

NARRATIVE: CASE EVENT DATE: 20210101
